FAERS Safety Report 5156758-X (Version None)
Quarter: 2006Q4

REPORT INFORMATION
  Report Type: 
  Country: None (occurrence: None)
  Receive Date: 20061122
  Receipt Date: 20061030
  Transmission Date: 20070319
  Serious: Yes (Other)
  Sender: FDA-Public Use
  Company Number: BE-MERCK-0611BEL00007

PATIENT
  Sex: Female
  Weight: 63 kg

DRUGS (5)
  1. FOSAMAX PLUS D [Suspect]
     Indication: OSTEOPOROSIS
     Route: 048
     Dates: start: 20061012, end: 20061101
  2. LEVOTHYROXINE SODIUM [Concomitant]
     Route: 048
  3. IPRIFLAVONE [Concomitant]
     Route: 048
  4. LORAZEPAM [Concomitant]
     Route: 048
  5. MULTI-VITAMINS [Concomitant]
     Route: 048

REACTIONS (9)
  - ABDOMINAL PAIN [None]
  - ABDOMINAL PAIN UPPER [None]
  - DIARRHOEA [None]
  - DYSPNOEA [None]
  - HEADACHE [None]
  - NAUSEA [None]
  - SWELLING [None]
  - VISUAL DISTURBANCE [None]
  - VOMITING [None]
